FAERS Safety Report 7568141-8 (Version None)
Quarter: 2011Q2

REPORT INFORMATION
  Report Type: 
  Country: None (occurrence: None)
  Receive Date: 20110616
  Receipt Date: 20110607
  Transmission Date: 20111010
  Serious: Yes (Other)
  Sender: FDA-Public Use
  Company Number: 2011SP026309

PATIENT
  Age: 20 Year
  Sex: Female

DRUGS (2)
  1. IMPLANON [Suspect]
     Indication: CONTRACEPTION
     Dates: start: 20110512, end: 20110527
  2. IMPLANON [Suspect]

REACTIONS (1)
  - DERMATITIS ALLERGIC [None]
